FAERS Safety Report 10036880 (Version 1)
Quarter: 2014Q1

REPORT INFORMATION
  Report Type: Spontaneous
  Country: US (occurrence: US)
  Receive Date: 20140326
  Receipt Date: 20140326
  Transmission Date: 20141002
  Serious: No
  Sender: FDA-Public Use
  Company Number: US-BIOGENIDEC-2014BI025386

PATIENT
  Age: 53 Year
  Sex: Female

DRUGS (8)
  1. TECFIDERA [Suspect]
     Indication: MULTIPLE SCLEROSIS
     Route: 048
     Dates: start: 20140228
  2. LYRICA [Concomitant]
  3. LOLTAREN [Concomitant]
  4. ATSRAVASTATIN [Concomitant]
  5. AMITRIPTYLINE [Concomitant]
  6. VITAMIN D [Concomitant]
  7. LEVOTHYROXINE [Concomitant]
  8. IBUPROFEN [Concomitant]

REACTIONS (7)
  - Oropharyngeal pain [Unknown]
  - Rash pruritic [Not Recovered/Not Resolved]
  - Abdominal pain [Unknown]
  - Diarrhoea [Unknown]
  - Nausea [Unknown]
  - Vomiting [Unknown]
  - Multiple sclerosis relapse [Not Recovered/Not Resolved]
